FAERS Safety Report 5197556-0 (Version None)
Quarter: 2006Q4

REPORT INFORMATION
  Report Type: 
  Country: None (occurrence: None)
  Receive Date: 20060926
  Receipt Date: 20060626
  Transmission Date: 20070319
  Serious: No
  Sender: FDA-Public Use
  Company Number: SP00817 (1)

PATIENT
  Age: 44 Year
  Sex: Male
  Weight: 83.0083 kg

DRUGS (4)
  1. XIFAXAN [Suspect]
     Indication: OVERGROWTH BACTERIAL
     Dosage: SEE IMAGE
     Route: 048
     Dates: start: 20060201, end: 20060201
  2. XIFAXAN [Suspect]
     Indication: OVERGROWTH BACTERIAL
     Dosage: SEE IMAGE
     Route: 048
     Dates: start: 20060318, end: 20060401
  3. ZELNORM [Concomitant]
  4. PROTONIX [Concomitant]

REACTIONS (1)
  - IRRITABILITY [None]
